FAERS Safety Report 9088723 (Version 1)
Quarter: 2013Q1

REPORT INFORMATION
  Report Type: Report from Study
  Country: US (occurrence: US)
  Receive Date: 20130218
  Receipt Date: 20130218
  Transmission Date: 20140127
  Serious: No
  Sender: FDA-Public Use
  Company Number: US-ABBOTT-12P-163-0968055-00

PATIENT
  Sex: Female
  Weight: 73.55 kg

DRUGS (2)
  1. SIMCOR 750MG/20MG [Suspect]
     Indication: BLOOD CHOLESTEROL INCREASED
     Dosage: 750/20 MG QHS
     Dates: start: 201202
  2. SIMCOR 750MG/20MG [Suspect]
     Dosage: 750/20 MG AT BEDTIME

REACTIONS (5)
  - Feeling hot [Recovered/Resolved]
  - Flushing [Recovered/Resolved]
  - Erythema [Recovered/Resolved]
  - Paraesthesia [Recovered/Resolved]
  - Sunburn [Recovered/Resolved]
